FAERS Safety Report 10538307 (Version 1)
Quarter: 2014Q4

REPORT INFORMATION
  Report Type: Spontaneous
  Country: DE (occurrence: DE)
  Receive Date: 20141023
  Receipt Date: 20141023
  Transmission Date: 20150529
  Serious: Yes (Congenital Anomaly, Other)
  Sender: FDA-Public Use
  Company Number: GXKR2014DE003895

PATIENT

DRUGS (4)
  1. ASPIRIN. [Concomitant]
     Active Substance: ASPIRIN
     Indication: ANTIPHOSPHOLIPID SYNDROME
     Dosage: 100 [MG/D ]
     Route: 064
  2. CORTICOSTEROIDS [Concomitant]
     Active Substance: CORTICOSTEROID NOS
     Indication: MATERNAL THERAPY TO ENHANCE FOETAL LUNG MATURITY
     Route: 064
     Dates: start: 20130719, end: 20130719
  3. HEPARIN-FRACTION [Concomitant]
     Active Substance: HEPARIN SODIUM
     Indication: ANTIPHOSPHOLIPID SYNDROME
     Route: 064
  4. THIAMAZOLE [Suspect]
     Active Substance: METHIMAZOLE
     Indication: HYPERTHYROIDISM
     Dosage: 5 [MG/D ]/ DOSAGE REDUCTION FROM GW 20: 2.5MG/D
     Route: 064

REACTIONS (6)
  - Patent ductus arteriosus [Recovered/Resolved]
  - Small for dates baby [Recovering/Resolving]
  - Atrial septal defect [Not Recovered/Not Resolved]
  - Klinefelter^s syndrome [Not Recovered/Not Resolved]
  - Hypospadias [Not Recovered/Not Resolved]
  - Haemangioma congenital [Unknown]

NARRATIVE: CASE EVENT DATE: 20130728
